FAERS Safety Report 8071259-7 (Version None)
Quarter: 2011Q4

REPORT INFORMATION
  Report Type: 
  Country: None (occurrence: None)
  Receive Date: 20111221
  Receipt Date: 20101123
  Transmission Date: 20120403
  Serious: Yes (Hospitalization)
  Sender: FDA-Public Use
  Company Number: PHHY2010US64284

PATIENT
  Age: 29 Year
  Sex: Female

DRUGS (1)
  1. EXJADE [Suspect]
     Indication: NEOPLASM
     Dosage: 2250 MG, DAILY, ORAL
     Route: 048
     Dates: start: 20081223

REACTIONS (1)
  - SICKLE CELL ANAEMIA [None]
